FAERS Safety Report 20853191 (Version 1)
Quarter: 2022Q2

REPORT INFORMATION
  Report Type: Report from Study
  Country: US (occurrence: US)
  Receive Date: 20220520
  Receipt Date: 20220520
  Transmission Date: 20220720
  Serious: Yes (Other)
  Sender: FDA-Public Use
  Company Number: US-ABBVIE-22K-163-4402511-00

PATIENT
  Age: 60 Year
  Sex: Female

DRUGS (1)
  1. IMBRUVICA [Suspect]
     Active Substance: IBRUTINIB
     Indication: B-cell small lymphocytic lymphoma
     Route: 048
     Dates: start: 202205

REACTIONS (4)
  - Nephrostomy [Unknown]
  - Post procedural haemorrhage [Unknown]
  - White blood cell count abnormal [Unknown]
  - Red blood cell count abnormal [Unknown]

NARRATIVE: CASE EVENT DATE: 20220501
